FAERS Safety Report 24901021 (Version 1)
Quarter: 2025Q1

REPORT INFORMATION
  Report Type: Spontaneous
  Country: US (occurrence: US)
  Receive Date: 20250129
  Receipt Date: 20250129
  Transmission Date: 20250409
  Serious: No
  Sender: MERCK
  Company Number: US-009507513-2501USA009577

PATIENT
  Sex: Female

DRUGS (1)
  1. KEYTRUDA [Suspect]
     Active Substance: PEMBROLIZUMAB
     Dates: start: 202409, end: 202409

REACTIONS (1)
  - Rash [Not Recovered/Not Resolved]
